FAERS Safety Report 24840104 (Version 1)
Quarter: 2025Q1

REPORT INFORMATION
  Report Type: Spontaneous
  Country: US (occurrence: None)
  Receive Date: 20250113
  Receipt Date: 20250113
  Transmission Date: 20250409
  Serious: Yes (Death)
  Sender: FDA-CTU
  Company Number: None

PATIENT
  Sex: Male

DRUGS (1)
  1. PIRFENIDONE [Suspect]
     Active Substance: PIRFENIDONE
     Dosage: OTHER QUANTITY : 1CAP3XDAYFOR7DAYS,TAKE2CAP3TIMESDAILYFOR7DAYS,THEN;?FREQUENCY : DAILY;?
     Route: 048

REACTIONS (1)
  - Death [None]
